FAERS Safety Report 7148908-0 (Version None)
Quarter: 2010Q4

REPORT INFORMATION
  Report Type: 
  Country: None (occurrence: None)
  Receive Date: 20101209
  Receipt Date: 20101129
  Transmission Date: 20110411
  Serious: Yes (Hospitalization, Congenital Anomaly)
  Sender: FDA-Public Use
  Company Number: A0847414A

PATIENT
  Sex: Male

DRUGS (2)
  1. PAXIL [Suspect]
     Indication: ANXIETY
  2. PAXIL CR [Suspect]
     Indication: ANXIETY

REACTIONS (3)
  - CONGENITAL ANOMALY [None]
  - DRUG EXPOSURE DURING PREGNANCY [None]
  - HYDROCELE [None]
